FAERS Safety Report 10619581 (Version 1)
Quarter: 2014Q4

REPORT INFORMATION
  Report Type: Spontaneous
  Country: IT (occurrence: None)
  Receive Date: 20141128
  Receipt Date: 20141128
  Transmission Date: 20150529
  Serious: Yes (Other)
  Sender: FDA-Public Use
  Company Number: 2014JUB00201

PATIENT

DRUGS (1)
  1. OLANZAPINE (OLANZAPINE)UKNOWN [Suspect]
     Active Substance: OLANZAPINE

REACTIONS (9)
  - Hypotension [None]
  - Hyperventilation [None]
  - Respiratory depression [None]
  - Dysarthria [None]
  - Coma [None]
  - Post-injection delirium sedation syndrome [None]
  - Tachycardia [None]
  - Sedation [None]
  - Overdose [None]
